FAERS Safety Report 9178190 (Version 1)
Quarter: 2013Q1

REPORT INFORMATION
  Report Type: Spontaneous
  Country: US (occurrence: US)
  Receive Date: 20130321
  Receipt Date: 20130321
  Transmission Date: 20140127
  Serious: No
  Sender: FDA-Public Use
  Company Number: US-PFIZER INC-2013090895

PATIENT
  Age: 56 Year
  Sex: Male
  Weight: 122.45 kg

DRUGS (12)
  1. LYRICA [Suspect]
     Indication: NEUROPATHY PERIPHERAL
     Dosage: 200 MG, 2X/DAY
     Route: 048
     Dates: start: 200810
  2. METFORMIN [Concomitant]
     Indication: DIABETES MELLITUS
     Dosage: 1000 MG, 2X/DAY
  3. GLIMEPIRIDE [Concomitant]
     Indication: DIABETES MELLITUS
     Dosage: UNK, 1X/DAY
     Route: 048
  4. TRADJENTA [Concomitant]
     Indication: DIABETES MELLITUS
     Dosage: UNK, 1X/DAY
     Route: 048
  5. PLAVIX [Concomitant]
     Indication: ANTICOAGULANT THERAPY
     Dosage: 75 MG, 1X/DAY
  6. ASPIRIN [Concomitant]
     Indication: ANTICOAGULANT THERAPY
     Dosage: 325 MG, 1X/DAY
  7. LISINOPRIL [Concomitant]
     Indication: HYPERTENSION
     Dosage: 10 MG, 1X/DAY
  8. METOPROLOL [Concomitant]
     Indication: CARDIAC DISORDER
     Dosage: UNK, 1X/DAY
  9. PRAVASTATIN [Concomitant]
     Indication: BLOOD CHOLESTEROL INCREASED
     Dosage: 40 MG, 1X/DAY
  10. PAROXETINE [Concomitant]
     Indication: DEPRESSION
     Dosage: 20 MG, 1X/DAY
  11. CYCLOBENZAPRINE [Concomitant]
     Indication: BACK PAIN
     Dosage: UNK
  12. DEPO-TESTOSTERONE [Concomitant]
     Dosage: UNK

REACTIONS (1)
  - Dizziness [Recovered/Resolved]
